FAERS Safety Report 19396369 (Version 1)
Quarter: 2021Q2

REPORT INFORMATION
  Report Type: Spontaneous
  Country: US (occurrence: US)
  Receive Date: 20210609
  Receipt Date: 20210609
  Transmission Date: 20210717
  Serious: Yes (Hospitalization, Other)
  Sender: FDA-Public Use
  Company Number: US-009507513-2106USA000840

PATIENT
  Age: 62 Year
  Sex: Male
  Weight: 96.15 kg

DRUGS (2)
  1. KEYTRUDA [Suspect]
     Active Substance: PEMBROLIZUMAB
     Indication: NON-SMALL CELL LUNG CANCER STAGE III
     Dosage: 200 MILLIGRAM, Q3W
     Route: 042
     Dates: start: 20201223, end: 20210511
  2. MOTRIN [Concomitant]
     Active Substance: IBUPROFEN
     Dosage: Q6H PRN

REACTIONS (1)
  - Cerebral haemorrhage [Unknown]

NARRATIVE: CASE EVENT DATE: 20210525
